FAERS Safety Report 13524534 (Version 3)
Quarter: 2017Q3

REPORT INFORMATION
  Report Type: Report from Study
  Country: US (occurrence: US)
  Receive Date: 20170508
  Receipt Date: 20170810
  Transmission Date: 20171127
  Serious: Yes (Hospitalization)
  Sender: FDA-Public Use
  Company Number: US-ACTELION-A-US2016-131251

PATIENT
  Age: 61 Year
  Sex: Female
  Weight: 65.76 kg

DRUGS (4)
  1. ADCIRCA [Concomitant]
     Active Substance: TADALAFIL
  2. LETAIRIS [Concomitant]
     Active Substance: AMBRISENTAN
  3. VELETRI [Suspect]
     Active Substance: EPOPROSTENOL
     Indication: PULMONARY ARTERIAL HYPERTENSION
     Dosage: 5.5 NG/KG, PER MIN
     Route: 042
     Dates: start: 20160202
  4. VELETRI [Suspect]
     Active Substance: EPOPROSTENOL
     Dosage: 26 NG/KG, PER MIN
     Route: 042

REACTIONS (16)
  - Weight decreased [Unknown]
  - Anal incontinence [Unknown]
  - Platelet count decreased [Unknown]
  - Unevaluable event [Unknown]
  - Decreased appetite [Unknown]
  - Arthralgia [Unknown]
  - Malaise [Unknown]
  - Dyspnoea [Recovering/Resolving]
  - Headache [Recovered/Resolved]
  - Urinary incontinence [Unknown]
  - Pain in jaw [Unknown]
  - Migraine [Unknown]
  - Fatigue [Unknown]
  - Fall [Unknown]
  - Diarrhoea [Unknown]
  - Catheter site erythema [Unknown]
